FAERS Safety Report 4867331-2 (Version None)
Quarter: 2005Q4

REPORT INFORMATION
  Report Type: 
  Country: None (occurrence: None)
  Receive Date: 20051223
  Receipt Date: 20051223
  Transmission Date: 20060501
  Serious: Yes (Life-Threatening)
  Sender: FDA-Public Use
  Company Number: None

PATIENT
  Age: 13 Year
  Sex: Female

DRUGS (6)
  1. IFOSFAMIDE [Suspect]
     Indication: HEPATIC NEOPLASM MALIGNANT
     Dosage: 3600MG X 2 DOSES  OVER 2 HOURS  IV
     Route: 042
     Dates: start: 20050920, end: 20050921
  2. MESNA [Concomitant]
  3. METHYLENE BLUE [Concomitant]
  4. ETOPOSIDE [Concomitant]
  5. CARBOPLATIN [Concomitant]
  6. ONDANSETRON [Concomitant]

REACTIONS (5)
  - COORDINATION ABNORMAL [None]
  - DISORIENTATION [None]
  - MENTAL STATUS CHANGES [None]
  - MUSCLE TWITCHING [None]
  - NEUROTOXICITY [None]
